FAERS Safety Report 20974031 (Version 1)
Quarter: 2022Q2

REPORT INFORMATION
  Report Type: Spontaneous
  Country: CO (occurrence: CO)
  Receive Date: 20220617
  Receipt Date: 20220617
  Transmission Date: 20220721
  Serious: Yes (Hospitalization, Other)
  Sender: FDA-Public Use
  Company Number: CO-IPCA LABORATORIES LIMITED-IPC-2022-CO-000708

PATIENT

DRUGS (4)
  1. FUROSEMIDE [Suspect]
     Active Substance: FUROSEMIDE
     Indication: Pulmonary oedema
     Dosage: 40 MILLIGRAM/4 HOURS
     Route: 064
  2. BETAMETHASONE [Suspect]
     Active Substance: BETAMETHASONE
     Indication: Polyhydramnios
     Dosage: 12 MILLIGRAM, QD
     Route: 064
  3. NIFEDIPINE [Suspect]
     Active Substance: NIFEDIPINE
     Indication: Product used for unknown indication
     Dosage: 30 MILLIGRAM, BID
     Route: 064
  4. DINOPROSTONE [Suspect]
     Active Substance: DINOPROSTONE
     Indication: Labour induction
     Dosage: 10 MILLIGRAM
     Route: 064

REACTIONS (5)
  - Pulmonary hypertension [Unknown]
  - Ventricular dysfunction [Unknown]
  - Myocarditis [Unknown]
  - Cardiac failure [Unknown]
  - Foetal exposure during pregnancy [Unknown]
